FAERS Safety Report 15247012 (Version 1)
Quarter: 2018Q3

REPORT INFORMATION
  Report Type: Spontaneous
  Country: US (occurrence: US)
  Receive Date: 20180806
  Receipt Date: 20180806
  Transmission Date: 20181010
  Serious: No
  Sender: FDA-Public Use
  Company Number: US-009507513-1807USA011157

PATIENT
  Sex: Female

DRUGS (9)
  1. INTRON A [Suspect]
     Active Substance: INTERFERON ALFA-2B
     Dosage: 18MIU 3ML MDV (INJECT 300,000 UNITS, 0.05ML 3 TIMES IN A WEEK)
     Route: 023
  2. INTRON A [Suspect]
     Active Substance: INTERFERON ALFA-2B
     Indication: PLASMACYTOMA
     Dosage: 300,000 UNITS 0.05ML
     Route: 023
  3. ACYCLOVIR. [Concomitant]
     Active Substance: ACYCLOVIR
     Dosage: 400 MG, UNK
  4. ERYTHROMYCIN. [Concomitant]
     Active Substance: ERYTHROMYCIN
     Dosage: 5MG/GM, UNK
  5. INTRON A [Suspect]
     Active Substance: INTERFERON ALFA-2B
     Dosage: 300,000 UNITS 0.05ML, QW
     Route: 023
  6. ACETAZOLAMIDE. [Concomitant]
     Active Substance: ACETAZOLAMIDE
     Dosage: 500 MG, UNK
  7. METHYLPRED ORAL [Concomitant]
     Dosage: 4 MG, UNK
  8. DARZALEX [Concomitant]
     Active Substance: DARATUMUMAB
     Dosage: 100MG/5M
  9. LIDOCAINE (+) PRILOCAINE [Concomitant]
     Dosage: 2.5?2.5%,UNK

REACTIONS (2)
  - Fatigue [Unknown]
  - Rash [Unknown]
